FAERS Safety Report 4871987-8 (Version None)
Quarter: 2005Q4

REPORT INFORMATION
  Report Type: 
  Country: None (occurrence: None)
  Receive Date: 20051230
  Receipt Date: 20051215
  Transmission Date: 20060501
  Serious: Yes (Other)
  Sender: FDA-Public Use
  Company Number: US-2005-027225

PATIENT
  Age: 48 Year
  Sex: Male
  Weight: 77 kg

DRUGS (5)
  1. BETASERON [Suspect]
     Indication: MULTIPLE SCLEROSIS
     Dosage: 8 MIU, EVERY 2D, SUBCUTANEOUS
     Route: 058
     Dates: start: 20050304
  2. PREDNISONE [Suspect]
     Indication: MULTIPLE SCLEROSIS
     Dosage: 1 G, X 4 DAYS, INTRAVENOUS
     Route: 042
     Dates: start: 20051107, end: 20051110
  3. NEURONTIN [Concomitant]
  4. ELAVIL [Concomitant]
  5. CIMETIDINE [Concomitant]

REACTIONS (10)
  - AMNESIA [None]
  - ASTHENIA [None]
  - CONVULSION [None]
  - DRUG INTERACTION [None]
  - HAEMATEMESIS [None]
  - HICCUPS [None]
  - INSOMNIA [None]
  - MALAISE [None]
  - MULTIPLE SCLEROSIS [None]
  - NAUSEA [None]
